FAERS Safety Report 5492300-1 (Version None)
Quarter: 2007Q4

REPORT INFORMATION
  Report Type: 
  Country: None (occurrence: None)
  Receive Date: 20071022
  Receipt Date: 20071019
  Transmission Date: 20080405
  Serious: Yes (Other)
  Sender: FDA-Public Use
  Company Number: US-ASTRAZENECA-2007UW19956

PATIENT
  Sex: Female
  Weight: 97.1 kg

DRUGS (3)
  1. SEROQUEL [Suspect]
     Indication: SCHIZOAFFECTIVE DISORDER
     Route: 048
     Dates: start: 20070816
  2. SEROQUEL [Suspect]
     Indication: MANIA
     Route: 048
     Dates: start: 20070816
  3. ABILIFY [Concomitant]
     Dates: end: 20070815

REACTIONS (8)
  - BLINDNESS [None]
  - CEREBROVASCULAR ACCIDENT [None]
  - DYSARTHRIA [None]
  - DYSPNOEA [None]
  - HALLUCINATION [None]
  - HYPERSENSITIVITY [None]
  - SINUSITIS [None]
  - VISUAL DISTURBANCE [None]
